FAERS Safety Report 6178870-9 (Version None)
Quarter: 2009Q2

REPORT INFORMATION
  Report Type: 
  Country: None (occurrence: None)
  Receive Date: 20090505
  Receipt Date: 20090421
  Transmission Date: 20091009
  Serious: Yes (Other)
  Sender: FDA-Public Use
  Company Number: IN-RANBAXY-2009R1-23536

PATIENT

DRUGS (1)
  1. CIPROFLOXACIN INFUSION [Suspect]
     Indication: DIARRHOEA
     Dosage: UNK
     Route: 040

REACTIONS (2)
  - RASH [None]
  - RESPIRATORY DISTRESS [None]
